FAERS Safety Report 19925496 (Version 1)
Quarter: 2021Q4

REPORT INFORMATION
  Report Type: Spontaneous
  Country: IT (occurrence: IT)
  Receive Date: 20211006
  Receipt Date: 20211006
  Transmission Date: 20220303
  Serious: Yes (Other)
  Sender: FDA-Public Use
  Company Number: None

PATIENT
  Age: 69 Year
  Sex: Female

DRUGS (2)
  1. PACLITAXEL [Suspect]
     Active Substance: PACLITAXEL
     Indication: Breast cancer
     Dosage: 133.6 MILLIGRAM, CYCLE
     Route: 042
     Dates: start: 20201015, end: 20210218
  2. SIMVASTATIN [Suspect]
     Active Substance: SIMVASTATIN
     Indication: Breast cancer
     Dosage: 760 MILLIGRAM, CYCLE
     Route: 042
     Dates: start: 20201015

REACTIONS (3)
  - Asthenia [Recovered/Resolved]
  - Paraesthesia [Recovered/Resolved]
  - Leukopenia [Recovered/Resolved]

NARRATIVE: CASE EVENT DATE: 20210218
